FAERS Safety Report 7564871-2 (Version None)
Quarter: 2011Q2

REPORT INFORMATION
  Report Type: 
  Country: None (occurrence: None)
  Receive Date: 20110622
  Receipt Date: 20110217
  Transmission Date: 20111010
  Serious: Yes (Death, Hospitalization)
  Sender: FDA-Public Use
  Company Number: US-MYLANLABS-2011S1001490

PATIENT
  Age: 52 Year
  Sex: Male

DRUGS (7)
  1. LEVOTHYROXINE SODIUM [Concomitant]
  2. FLURAZEPAM [Concomitant]
  3. CLOZAPINE [Suspect]
     Indication: SCHIZOPHRENIA
     Route: 048
  4. CLONAZEPAM [Concomitant]
  5. HYDROXYZINE [Concomitant]
     Route: 048
  6. IBUPROFEN [Concomitant]
  7. CLOZAPINE [Suspect]
     Route: 048

REACTIONS (1)
  - CHOKING [None]
